FAERS Safety Report 8444292-0 (Version None)
Quarter: 2012Q2

REPORT INFORMATION
  Report Type: 
  Country: None (occurrence: None)
  Receive Date: 20120618
  Receipt Date: 20120604
  Transmission Date: 20120825
  Serious: Yes (Other)
  Sender: FDA-Public Use
  Company Number: BR-AMGEN-BRASP2012036148

PATIENT
  Age: 38 Year
  Sex: Male
  Weight: 76 kg

DRUGS (5)
  1. ENBREL [Suspect]
     Indication: ANKYLOSING SPONDYLITIS
     Dosage: 25 MG, 2X/WEEK
     Route: 058
     Dates: start: 20070701, end: 20101001
  2. INDOMETHACIN [Concomitant]
     Indication: HYPERTENSION
     Dosage: STRENGTH: 50 MG, 2X/DAY
  3. LOSARTAN POTASSIUM [Concomitant]
     Indication: HYPERTENSION
     Dosage: STRENGTH 25MG, 1X/DAY
  4. SULFASALAZINE [Concomitant]
     Indication: ANKYLOSING SPONDYLITIS
     Dosage: STRENGTH 500MG, 1X/DAY
  5. ATENOLOL [Concomitant]
     Indication: HYPERTENSION
     Dosage: STRENGTH 25MG, 1X/DAY

REACTIONS (2)
  - FISTULA [None]
  - BLADDER DISORDER [None]
